FAERS Safety Report 11789658 (Version 1)
Quarter: 2015Q4

REPORT INFORMATION
  Report Type: Spontaneous
  Country: GB (occurrence: GB)
  Receive Date: 20151201
  Receipt Date: 20151201
  Transmission Date: 20160305
  Serious: Yes (Life-Threatening, Hospitalization, Other)
  Sender: FDA-Public Use
  Company Number: GB-GLAXOSMITHKLINE-GB2015168980

PATIENT
  Age: 62 Year
  Sex: Male
  Weight: 107 kg

DRUGS (28)
  1. ORLISTAT [Suspect]
     Active Substance: ORLISTAT
     Indication: WEIGHT DECREASED
     Dosage: 120 MG, UNK
     Route: 048
     Dates: start: 20150914, end: 20151027
  2. AVEENO [Concomitant]
     Active Substance: DIMETHICONE\HOMOSALATE\OCTINOXATE\OCTISALATE\TITANIUM DIOXIDE
     Dosage: USE AS DIRECTED
     Dates: start: 20051003, end: 20150622
  3. TIOTROPIUM [Concomitant]
     Active Substance: TIOTROPIUM
     Dosage: DRY POWDER CAPSULES FOR INHALATION
     Dates: start: 20140915, end: 20151022
  4. KETOCONAZOLE. [Concomitant]
     Active Substance: KETOCONAZOLE
     Dosage: USE AS DIRECTED.
     Dates: start: 20091211, end: 20150316
  5. ATORVASTATIN [Concomitant]
     Active Substance: ATORVASTATIN
     Dosage: 10 MG, QD
     Dates: start: 20060710, end: 20151013
  6. RANITIDINE [Concomitant]
     Active Substance: RANITIDINE\RANITIDINE HYDROCHLORIDE
     Dosage: AT NIGHT
     Dates: start: 20120919, end: 20151013
  7. TESTOSTERONE. [Concomitant]
     Active Substance: TESTOSTERONE
     Dosage: 50 MG/5 GRAM SACHET
  8. AMLODIPINE [Concomitant]
     Active Substance: AMLODIPINE BESYLATE
     Indication: HYPERTENSION
     Route: 048
     Dates: start: 2006, end: 20151027
  9. PANTOPRAZOLE [Concomitant]
     Active Substance: PANTOPRAZOLE SODIUM
     Dosage: 80 MG, QD
     Dates: start: 20130520, end: 20151013
  10. LACTULOSE. [Concomitant]
     Active Substance: LACTULOSE
     Dosage: SOLUTION 3.1-3.7 G/5ML
     Dates: start: 20121109, end: 20150721
  11. ASPIRIN. [Concomitant]
     Active Substance: ASPIRIN
     Indication: PROPHYLAXIS
     Dosage: E/C TABLETS IN THE MORNING
     Route: 048
     Dates: start: 20020705, end: 20151027
  12. AMITRIPTYLINE HYDROCHLORIDE. [Concomitant]
     Active Substance: AMITRIPTYLINE HYDROCHLORIDE
     Indication: NEURALGIA
     Dosage: AT NIGHT
     Route: 048
     Dates: start: 2013, end: 20151027
  13. QUININE SULPHATE [Concomitant]
     Active Substance: QUININE SULFATE
     Dosage: 300 MG, QD
     Dates: start: 20130823, end: 20150928
  14. METFORMIN HYDROCHLORIDE. [Concomitant]
     Active Substance: METFORMIN HYDROCHLORIDE
     Dosage: 500 MG, QD
     Dates: start: 20111124, end: 20150818
  15. TADALAFIL [Concomitant]
     Active Substance: TADALAFIL
     Dosage: IN THE MORNING
     Dates: start: 20151009, end: 20151009
  16. BUPRENORPHINE. [Concomitant]
     Active Substance: BUPRENORPHINE
     Dosage: 5 MICROGRAMS/HOURLY
     Route: 062
     Dates: start: 20150511, end: 20151022
  17. TERBUTALINE SULFATE. [Concomitant]
     Active Substance: TERBUTALINE SULFATE
     Dosage: BREATH-ACTUATED DRY POWDER INHALER
     Route: 055
     Dates: start: 20140723, end: 20151022
  18. RAMIPRIL. [Concomitant]
     Active Substance: RAMIPRIL
     Dosage: 10 MG, QD
     Dates: start: 20120111, end: 20150914
  19. BUTRANS [Concomitant]
     Active Substance: BUPRENORPHINE
     Dosage: 10 MICROGRAMS/HOUR
     Route: 062
     Dates: start: 20131211, end: 20150928
  20. BISOPROLOL FUMARATE. [Concomitant]
     Active Substance: BISOPROLOL FUMARATE
     Indication: HYPERTENSION
     Route: 048
     Dates: start: 2006, end: 20151027
  21. GLUCOSE [Concomitant]
     Active Substance: DEXTROSE
     Dosage: USE AS DIRECTED.
     Route: 048
     Dates: start: 20110207, end: 20131030
  22. PARACETAMOL [Concomitant]
     Active Substance: ACETAMINOPHEN
     Dosage: 500 MG, QID
     Dates: start: 20140307, end: 20150914
  23. FLUOXETINE HYDROCHLORIDE. [Concomitant]
     Active Substance: FLUOXETINE HYDROCHLORIDE
     Dosage: 40 MG, QD
     Dates: start: 20110816, end: 20151013
  24. SYMBICORT [Concomitant]
     Active Substance: BUDESONIDE\FORMOTEROL FUMARATE DIHYDRATE
     Dosage: TURBOHALER 100/6 MICROGRAMS/INHALATION
     Route: 055
  25. HUMULIN NOS [Concomitant]
     Active Substance: INSULIN HUMAN
     Dosage: 100 UNITS/ML 3 ML CARTRIDGE AS DIRECTED
     Dates: start: 20131021, end: 20151013
  26. ALLOPURINOL. [Concomitant]
     Active Substance: ALLOPURINOL
     Indication: GOUT
     Route: 048
     Dates: start: 1998, end: 20151027
  27. TADALAFIL [Concomitant]
     Active Substance: TADALAFIL
     Dosage: AS DIRECTED
     Dates: start: 20150501, end: 20150818
  28. FOLIC ACID. [Concomitant]
     Active Substance: FOLIC ACID
     Dates: start: 20130903, end: 20150914

REACTIONS (4)
  - Malaise [Recovering/Resolving]
  - Lethargy [Recovering/Resolving]
  - Hypophagia [Recovering/Resolving]
  - Acute kidney injury [Recovering/Resolving]

NARRATIVE: CASE EVENT DATE: 201509
